FAERS Safety Report 8276678 (Version 4)
Quarter: 2014Q2

REPORT INFORMATION
  Report Type: Spontaneous
  Country: JP (occurrence: JP)
  Receive Date: 20111206
  Receipt Date: 20140610
  Transmission Date: 20141212
  Serious: Yes (Hospitalization)
  Sender: FDA-Public Use
  Company Number: JP-GLAXOSMITHKLINE-B0739157A

PATIENT
  Age: 32 Year
  Sex: Female
  Weight: 27 kg

DRUGS (9)
  1. LAMICTAL [Suspect]
     Indication: PARTIAL SEIZURES
     Dosage: 25MG PER DAY
     Route: 048
     Dates: start: 20110530
  2. LAMICTAL [Suspect]
     Indication: PARTIAL SEIZURES
     Dosage: 25MG PER DAY
     Route: 048
     Dates: end: 20110704
  3. VALERIN [Suspect]
     Indication: PARTIAL SEIZURES
     Dosage: 200MG THREE TIMES PER DAY
     Route: 048
     Dates: start: 2001
  4. HYDANTOL [Concomitant]
     Indication: PARTIAL SEIZURES
     Route: 048
     Dates: start: 2002, end: 20110702
  5. DIAMOX [Concomitant]
     Indication: PARTIAL SEIZURES
     Route: 048
     Dates: start: 2002
  6. RIVOTRIL [Concomitant]
     Indication: PARTIAL SEIZURES
     Dosage: .5MG TWICE PER DAY
     Route: 048
     Dates: start: 2002
  7. MYSTAN [Concomitant]
     Indication: PARTIAL SEIZURES
     Route: 048
     Dates: start: 2002
  8. MYSTAN [Concomitant]
     Indication: PARTIAL SEIZURES
     Route: 048
  9. L-CARTIN [Concomitant]
     Indication: PARTIAL SEIZURES
     Route: 048

REACTIONS (28)
  - Stevens-Johnson syndrome [Recovered/Resolved]
  - Rash [Unknown]
  - Ocular hyperaemia [Recovering/Resolving]
  - Erythema of eyelid [Recovering/Resolving]
  - Eye discharge [Recovering/Resolving]
  - Eyelid erosion [Recovering/Resolving]
  - Oral mucosa erosion [Unknown]
  - Lip erosion [Unknown]
  - Scab [Unknown]
  - Papule [Unknown]
  - Erythema [Unknown]
  - Apoptosis [Unknown]
  - White blood cell count increased [Unknown]
  - Neutrophil percentage increased [Unknown]
  - Basophil count increased [Unknown]
  - Monocyte count decreased [Unknown]
  - Lymphocyte count decreased [Unknown]
  - Aspartate aminotransferase decreased [Unknown]
  - Alanine aminotransferase increased [Unknown]
  - Blood lactate dehydrogenase decreased [Unknown]
  - Gamma-glutamyltransferase increased [Unknown]
  - C-reactive protein increased [Unknown]
  - Conjunctival hyperaemia [Recovering/Resolving]
  - Lacrimation increased [Recovering/Resolving]
  - Conjunctivitis [Recovering/Resolving]
  - Tongue coated [Unknown]
  - Pyrexia [Unknown]
  - Keratitis [Recovering/Resolving]
